FAERS Safety Report 10520322 (Version 2)
Quarter: 2015Q1

REPORT INFORMATION
  Report Type: Spontaneous
  Country: US (occurrence: US)
  Receive Date: 20141015
  Receipt Date: 20150210
  Transmission Date: 20150720
  Serious: No
  Sender: FDA-Public Use
  Company Number: US-GLAXOSMITHKLINE-A1091054A

PATIENT

DRUGS (20)
  1. MULTIVITAMIN [Concomitant]
     Active Substance: VITAMINS
  2. ENEMA (NOS) [Concomitant]
  3. COLACE [Concomitant]
     Active Substance: DOCUSATE SODIUM
  4. PEPCID [Concomitant]
     Active Substance: FAMOTIDINE
  5. LASIX [Concomitant]
     Active Substance: FUROSEMIDE
  6. DULCOLAX [Concomitant]
     Active Substance: BISACODYL OR DOCUSATE SODIUM
  7. COMBIGAN (BRIMONIDINE TARTRATE + TIMOLOL MALEATE) [Concomitant]
  8. TYLENOL TABLET [Concomitant]
  9. TYKERB [Suspect]
     Active Substance: LAPATINIB DITOSYLATE
     Dosage: 250MG TABLETS, UNKNOWN DOSING.
     Route: 065
     Dates: start: 20140913, end: 20140919
  10. MILK OF MAGNESIA [Concomitant]
     Active Substance: MAGNESIUM HYDROXIDE
  11. MARINOL [Concomitant]
     Active Substance: DRONABINOL
  12. PERCOCET [Concomitant]
     Active Substance: ACETAMINOPHEN\OXYCODONE HYDROCHLORIDE
  13. ALBUTEROL INHALATION POWDER [Concomitant]
  14. TRAMADOL [Concomitant]
     Active Substance: TRAMADOL
  15. CAPECITABINE. [Suspect]
     Active Substance: CAPECITABINE
     Dosage: UNKNOWN DOSING.
     Route: 065
     Dates: start: 20140913, end: 20140919
  16. ALDACTONE [Concomitant]
     Active Substance: SPIRONOLACTONE
  17. REMERON [Concomitant]
     Active Substance: MIRTAZAPINE
  18. LIDOCAINE. [Concomitant]
     Active Substance: LIDOCAINE
  19. PROSTATE CAPSULE [Concomitant]
  20. METOPROLOL [Concomitant]
     Active Substance: METOPROLOL

REACTIONS (3)
  - Food aversion [Recovering/Resolving]
  - Diarrhoea [Recovering/Resolving]
  - Somnolence [Recovering/Resolving]

NARRATIVE: CASE EVENT DATE: 20140919
